FAERS Safety Report 7268593-7 (Version None)
Quarter: 2011Q1

REPORT INFORMATION
  Report Type: 
  Country: None (occurrence: None)
  Receive Date: 20110201
  Receipt Date: 20101216
  Transmission Date: 20110831
  Serious: Yes (Other)
  Sender: FDA-Public Use
  Company Number: US-BAYER-201017363NA

PATIENT
  Sex: Female
  Weight: 93 kg

DRUGS (8)
  1. ANTACIDS [Concomitant]
  2. YAZ [Suspect]
     Indication: PREMENSTRUAL SYNDROME
     Dosage: UNK UNK, UNK
     Route: 048
     Dates: start: 20070126, end: 20090901
  3. ASCORBIC ACID [Concomitant]
  4. UNCODEABLE ^UNCLASSIFIABLE^ [Concomitant]
  5. YASMIN [Suspect]
     Indication: PREMENSTRUAL SYNDROME
     Dosage: UNK UNK, UNK
     Route: 048
     Dates: start: 20060101, end: 20070126
  6. PRILOSEC [Concomitant]
  7. AMBIEN [Concomitant]
  8. WELLBUTRIN XL [Concomitant]

REACTIONS (12)
  - CHEST PAIN [None]
  - DYSPNOEA [None]
  - CHOLELITHIASIS [None]
  - ABDOMINAL PAIN UPPER [None]
  - FAT INTOLERANCE [None]
  - PALPITATIONS [None]
  - ABDOMINAL PAIN [None]
  - MUSCULOSKELETAL PAIN [None]
  - VOMITING [None]
  - NAUSEA [None]
  - ANXIETY [None]
  - GASTROOESOPHAGEAL REFLUX DISEASE [None]
